FAERS Safety Report 5215146-8 (Version None)
Quarter: 2007Q1

REPORT INFORMATION
  Report Type: 
  Country: None (occurrence: None)
  Receive Date: 20070122
  Receipt Date: 20070110
  Transmission Date: 20070707
  Serious: Yes (Other)
  Sender: FDA-Public Use
  Company Number: GB-PFIZER INC-2007003602

PATIENT
  Age: 12 Year
  Sex: Male
  Weight: 40 kg

DRUGS (3)
  1. METHYLPREDNISOLONE ACETATE SUSPENSION, STERILE [Suspect]
     Indication: COLITIS ULCERATIVE
     Route: 042
  2. CIPROFLOXACIN [Concomitant]
     Indication: SALMONELLOSIS
     Route: 042
  3. RANITIDINE [Concomitant]
     Route: 042

REACTIONS (3)
  - INTRACRANIAL PRESSURE INCREASED [None]
  - INTRACRANIAL VENOUS SINUS THROMBOSIS [None]
  - PAPILLOEDEMA [None]
